FAERS Safety Report 4337224-8 (Version None)
Quarter: 2004Q2

REPORT INFORMATION
  Report Type: 
  Country: None (occurrence: None)
  Receive Date: 20040402
  Receipt Date: 20030718
  Transmission Date: 20050107
  Serious: Yes (Hospitalization)
  Sender: FDA-Public Use
  Company Number: INDT-PR-0307S-0008 (0)

PATIENT
  Age: 61 Year
  Sex: Male

DRUGS (5)
  1. INDIUM- 111 DTPA INJ [Suspect]
     Indication: CEREBROSPINAL FLUID RHINORRHOEA
     Dosage: 55.5 MBQ, SINGLE DOSE, I.T.
     Route: 037
     Dates: start: 20030716, end: 20030716
  2. ATORVASTATIN CALCIUM (LIPITOR) [Concomitant]
  3. METOPROLOL SUCCINATE SR (TOPROL XL) [Concomitant]
  4. FLOMAX [Concomitant]
  5. TECHNETIUM TC 99M GENERATOR [Concomitant]

REACTIONS (1)
  - MENINGITIS [None]
